FAERS Safety Report 19791175 (Version 2)
Quarter: 2021Q4

REPORT INFORMATION
  Report Type: Spontaneous
  Country: PT (occurrence: PT)
  Receive Date: 20210906
  Receipt Date: 20211221
  Transmission Date: 20220304
  Serious: Yes (Other)
  Sender: FDA-Public Use
  Company Number: PT-JNJFOC-20210829128

PATIENT
  Age: 39 Year
  Sex: Female

DRUGS (8)
  1. AMOXICILLIN\CLAVULANIC ACID [Suspect]
     Active Substance: AMOXICILLIN\CLAVULANIC ACID
     Indication: Influenza
     Dosage: UNK
     Route: 065
  2. BOSENTAN [Suspect]
     Active Substance: BOSENTAN
     Indication: Pulmonary arterial hypertension
     Dosage: 250 MILLIGRAM, ONCE A DAY
     Route: 048
     Dates: start: 201901
  3. BOSENTAN [Suspect]
     Active Substance: BOSENTAN
     Dosage: 125 MILLIGRAM, TWO TIMES A DAY
     Route: 065
  4. SILDENAFIL [Suspect]
     Active Substance: SILDENAFIL
     Indication: Pulmonary arterial hypertension
     Dosage: 60 MILLIGRAM, ONCE A DAY
     Route: 065
     Dates: start: 201901
  5. SILDENAFIL [Suspect]
     Active Substance: SILDENAFIL
     Dosage: 20 MILLIGRAM, 3 TIMES A DAY
     Route: 065
  6. OSELTAMIVIR [Suspect]
     Active Substance: OSELTAMIVIR
     Indication: Influenza
     Dosage: UNK
     Route: 065
  7. UPTRAVI [Concomitant]
     Active Substance: SELEXIPAG
     Indication: Pulmonary arterial hypertension
     Dosage: 400 MICROGRAM, ONCE A DAY
     Route: 048
     Dates: start: 202010
  8. UPTRAVI [Concomitant]
     Active Substance: SELEXIPAG
     Dosage: 2000 MICROGRAM, ONCE A DAY
     Route: 048
     Dates: start: 202102

REACTIONS (3)
  - Pulmonary hypertension [Unknown]
  - Cardiac index decreased [Unknown]
  - Maternal exposure during pregnancy [Unknown]
